FAERS Safety Report 20115634 (Version 2)
Quarter: 2022Q1

REPORT INFORMATION
  Report Type: Spontaneous
  Country: US (occurrence: US)
  Receive Date: 20211126
  Receipt Date: 20220228
  Transmission Date: 20220423
  Serious: Yes (Other)
  Sender: FDA-Public Use
  Company Number: US-THERATECHNOLOGIES INC.-2021-THE-TES-000289

PATIENT
  Age: 66 Year
  Sex: Male

DRUGS (1)
  1. EGRIFTA SV [Suspect]
     Active Substance: TESAMORELIN ACETATE
     Indication: Lipodystrophy acquired
     Dosage: 035 ML, QD
     Route: 058
     Dates: start: 20210303

REACTIONS (1)
  - Venous operation [Recovered/Resolved]

NARRATIVE: CASE EVENT DATE: 20211018
